FAERS Safety Report 15758143 (Version 3)
Quarter: 2020Q2

REPORT INFORMATION
  Report Type: Report from Study
  Country: US (occurrence: US)
  Receive Date: 20181225
  Receipt Date: 20200415
  Transmission Date: 20200713
  Serious: Yes (Other)
  Sender: FDA-Public Use
  Company Number: US-ROCHE-2231141

PATIENT
  Age: 34 Year
  Sex: Male
  Weight: 86.26 kg

DRUGS (4)
  1. OCREVUS [Suspect]
     Active Substance: OCRELIZUMAB
     Dosage: EVERY 6 MONTHS
     Route: 042
     Dates: start: 20180413
  2. OCREVUS [Suspect]
     Active Substance: OCRELIZUMAB
     Dosage: EVERY 6 MONTHS
     Route: 042
     Dates: start: 20171113
  3. OCREVUS [Suspect]
     Active Substance: OCRELIZUMAB
     Indication: PRIMARY PROGRESSIVE MULTIPLE SCLEROSIS
     Dosage: EVERY 6 MONTHS
     Route: 042
     Dates: start: 20171030
  4. OCREVUS [Suspect]
     Active Substance: OCRELIZUMAB
     Dosage: EVERY 6 MONTHS
     Route: 042
     Dates: start: 20181031

REACTIONS (5)
  - Bronchitis [Recovered/Resolved]
  - Vomiting [Recovered/Resolved]
  - Nausea [Recovered/Resolved]
  - Multiple sclerosis [Not Recovered/Not Resolved]
  - Body temperature increased [Recovered/Resolved]

NARRATIVE: CASE EVENT DATE: 20180413
